FAERS Safety Report 8845132 (Version 3)
Quarter: 2012Q4

REPORT INFORMATION
  Report Type: Report from Study
  Country: FR (occurrence: FR)
  Receive Date: 20121017
  Receipt Date: 20121226
  Transmission Date: 20130627
  Serious: Yes (Life-Threatening, Hospitalization)
  Sender: FDA-Public Use
  Company Number: FR-PFIZER INC-2012254299

PATIENT
  Age: 51 Year
  Sex: Female
  Weight: 50 kg

DRUGS (7)
  1. CRIZOTINIB [Suspect]
     Indication: LUNG ADENOCARCINOMA
     Dosage: 250 mg, 2x/day
     Route: 048
     Dates: start: 20120716, end: 20120910
  2. CRIZOTINIB [Suspect]
     Dosage: 400 mg, 1x/day
     Dates: start: 20121009
  3. CRIZOTINIB [Suspect]
     Dosage: 400 mg, 1x/day
     Dates: start: 20121020
  4. KEPPRA [Concomitant]
     Indication: EPILEPSY
     Dosage: 750 mg, 2x/day
     Route: 048
     Dates: start: 201205
  5. INEXIUM [Concomitant]
     Indication: PROPHYLAXIS
     Dosage: 20 mg, 1x/day
     Dates: start: 201207
  6. SOLUPRED [Concomitant]
     Indication: APPETITE DISORDER
     Dosage: 10 mg, 1x/day
     Dates: start: 201207
  7. SPECIAFOLDINE [Concomitant]
     Dosage: 0.4 mg, 1x/day
     Dates: start: 201201

REACTIONS (10)
  - Gastrointestinal obstruction [Recovering/Resolving]
  - Shock [Recovering/Resolving]
  - Sepsis [Recovering/Resolving]
  - Constipation [Recovering/Resolving]
  - Performance status decreased [Recovering/Resolving]
  - Blood creatinine increased [Unknown]
  - Anaemia [Recovered/Resolved]
  - Neutropenia [Recovered/Resolved]
  - Diarrhoea [Unknown]
  - Transaminases increased [Unknown]
